FAERS Safety Report 6000981-9 (Version None)
Quarter: 2008Q4

REPORT INFORMATION
  Report Type: 
  Country: None (occurrence: None)
  Receive Date: 20081215
  Receipt Date: 20080303
  Transmission Date: 20090506
  Serious: No
  Sender: FDA-Public Use
  Company Number: US-AMGEN-KDL267820

PATIENT
  Sex: Female

DRUGS (4)
  1. ENBREL [Suspect]
     Indication: RHEUMATOID ARTHRITIS
     Dates: start: 20080214
  2. ARAVA [Concomitant]
  3. PREDNISONE TAB [Concomitant]
  4. CELEBREX [Concomitant]

REACTIONS (1)
  - INJECTION SITE REACTION [None]
